FAERS Safety Report 8156400-X (Version None)
Quarter: 2012Q1

REPORT INFORMATION
  Report Type: 
  Country: None (occurrence: None)
  Receive Date: 20120103
  Receipt Date: 20111005
  Transmission Date: 20120608
  Serious: No
  Sender: FDA-Public Use
  Company Number: AE-2011-002080

PATIENT
  Age: 64 Year
  Sex: Female

DRUGS (8)
  1. LEVOTHYROXINE SODIUM [Concomitant]
  2. CALCIUM CARBONATE [Concomitant]
  3. RIBAVIRIN [Concomitant]
  4. MILK THISTLE [Concomitant]
  5. MULTIVITAMIN WITHOUT IRON [Concomitant]
  6. INCIVEK [Suspect]
     Dosage: 2250 MG (750 MG, 3 IN 1 D)
     Dates: start: 20110917
  7. PEGASYS [Concomitant]
  8. SAM E (ADEMETIONINE) [Concomitant]

REACTIONS (3)
  - THIRST [None]
  - ACCIDENTAL OVERDOSE [None]
  - FATIGUE [None]
